FAERS Safety Report 25013496 (Version 2)
Quarter: 2025Q4

REPORT INFORMATION
  Report Type: Spontaneous
  Country: US (occurrence: None)
  Receive Date: 20250226
  Receipt Date: 20251120
  Transmission Date: 20260117
  Serious: No
  Sender: UCB
  Company Number: US-UCBSA-2024047874

PATIENT
  Age: 13 Year

DRUGS (39)
  1. LACOSAMIDE [Suspect]
     Active Substance: LACOSAMIDE
     Indication: Generalised tonic-clonic seizure
     Dosage: 150 MILLIGRAM, 2X/DAY (BID)
  2. LACOSAMIDE [Suspect]
     Active Substance: LACOSAMIDE
     Indication: COVID-19
  3. LACOSAMIDE [Suspect]
     Active Substance: LACOSAMIDE
     Indication: Febrile infection-related epilepsy syndrome
  4. LACOSAMIDE [Suspect]
     Active Substance: LACOSAMIDE
     Indication: Off label use
  5. LEVETIRACETAM [Suspect]
     Active Substance: LEVETIRACETAM
     Indication: Generalised tonic-clonic seizure
     Dosage: 1000 MILLIGRAM
  6. LEVETIRACETAM [Suspect]
     Active Substance: LEVETIRACETAM
     Indication: COVID-19
  7. LEVETIRACETAM [Suspect]
     Active Substance: LEVETIRACETAM
     Indication: Febrile infection-related epilepsy syndrome
  8. LEVETIRACETAM [Suspect]
     Active Substance: LEVETIRACETAM
     Indication: Off label use
  9. LORAZEPAM [Suspect]
     Active Substance: LORAZEPAM
     Indication: Generalised tonic-clonic seizure
     Dosage: 2 MILLIGRAM
  10. LORAZEPAM [Suspect]
     Active Substance: LORAZEPAM
     Indication: COVID-19
  11. LORAZEPAM [Suspect]
     Active Substance: LORAZEPAM
     Indication: Febrile infection-related epilepsy syndrome
  12. LORAZEPAM [Suspect]
     Active Substance: LORAZEPAM
     Indication: Generalised tonic-clonic seizure
     Dosage: UNK
  13. LORAZEPAM [Suspect]
     Active Substance: LORAZEPAM
     Indication: COVID-19
  14. LORAZEPAM [Suspect]
     Active Substance: LORAZEPAM
     Indication: Febrile infection-related epilepsy syndrome
  15. LORAZEPAM [Suspect]
     Active Substance: LORAZEPAM
     Indication: Generalised tonic-clonic seizure
     Dosage: UNK
  16. LORAZEPAM [Suspect]
     Active Substance: LORAZEPAM
     Indication: COVID-19
  17. LORAZEPAM [Suspect]
     Active Substance: LORAZEPAM
     Indication: Febrile infection-related epilepsy syndrome
  18. LORAZEPAM [Suspect]
     Active Substance: LORAZEPAM
     Indication: Generalised tonic-clonic seizure
     Dosage: 2 GRAM PER KILOGRAM (DIVIDED OVER 3 DAYS)
  19. LORAZEPAM [Suspect]
     Active Substance: LORAZEPAM
     Indication: COVID-19
  20. LORAZEPAM [Suspect]
     Active Substance: LORAZEPAM
     Indication: Febrile infection-related epilepsy syndrome
  21. LORAZEPAM [Suspect]
     Active Substance: LORAZEPAM
     Indication: Generalised tonic-clonic seizure
     Dosage: 10 MILLIGRAM/KILOGRAM/DAY (DIVIDED Q6 HOURS)
  22. LORAZEPAM [Suspect]
     Active Substance: LORAZEPAM
     Indication: COVID-19
  23. LORAZEPAM [Suspect]
     Active Substance: LORAZEPAM
     Indication: Febrile infection-related epilepsy syndrome
  24. LORAZEPAM [Suspect]
     Active Substance: LORAZEPAM
     Indication: Generalised tonic-clonic seizure
     Dosage: 150 MILLIGRAM, 2X/DAY (BID)
  25. LORAZEPAM [Suspect]
     Active Substance: LORAZEPAM
     Indication: COVID-19
  26. LORAZEPAM [Suspect]
     Active Substance: LORAZEPAM
     Indication: Febrile infection-related epilepsy syndrome
  27. doxycycline. [Concomitant]
     Indication: Mycoplasma infection
     Dosage: UNK
  28. LORAZEPAM [Concomitant]
     Active Substance: LORAZEPAM
     Indication: Generalised tonic-clonic seizure
     Dosage: 100 MILLIGRAM, 4X/DAY (QID)
  29. LORAZEPAM [Concomitant]
     Active Substance: LORAZEPAM
     Indication: COVID-19
     Dosage: 100 MILLIGRAM, 2X/DAY (BID)
  30. LORAZEPAM [Concomitant]
     Active Substance: LORAZEPAM
     Indication: Febrile infection-related epilepsy syndrome
  31. LORAZEPAM [Concomitant]
     Active Substance: LORAZEPAM
     Indication: Generalised tonic-clonic seizure
     Dosage: 20 MILLIGRAM, ONCE DAILY (QD)
  32. LORAZEPAM [Concomitant]
     Active Substance: LORAZEPAM
     Indication: COVID-19
  33. LORAZEPAM [Concomitant]
     Active Substance: LORAZEPAM
     Indication: Febrile infection-related epilepsy syndrome
  34. LORAZEPAM [Concomitant]
     Active Substance: LORAZEPAM
     Indication: Generalised tonic-clonic seizure
     Dosage: 5 MILLIGRAM, 2X/DAY (BID)
  35. LORAZEPAM [Concomitant]
     Active Substance: LORAZEPAM
     Indication: COVID-19
  36. LORAZEPAM [Concomitant]
     Active Substance: LORAZEPAM
     Indication: Febrile infection-related epilepsy syndrome
  37. LORAZEPAM [Concomitant]
     Active Substance: LORAZEPAM
     Indication: Generalised tonic-clonic seizure
     Dosage: 600 MILLIGRAM, 2X/DAY (BID)
  38. LORAZEPAM [Concomitant]
     Active Substance: LORAZEPAM
     Indication: COVID-19
     Dosage: 450 MILLIGRAM, 2X/DAY (BID)
  39. LORAZEPAM [Concomitant]
     Active Substance: LORAZEPAM
     Indication: Febrile infection-related epilepsy syndrome

REACTIONS (2)
  - Off label use [Unknown]
  - Multiple-drug resistance [Unknown]
